FAERS Safety Report 8329261-3 (Version None)
Quarter: 2012Q2

REPORT INFORMATION
  Report Type: 
  Country: None (occurrence: None)
  Receive Date: 20120502
  Receipt Date: 20110804
  Transmission Date: 20120825
  Serious: No
  Sender: FDA-Public Use
  Company Number: US-ASTRAZENECA-2011SE46850

PATIENT
  Sex: Female

DRUGS (2)
  1. FASLODEX [Suspect]
     Route: 030
  2. ATENOLOL [Concomitant]

REACTIONS (4)
  - INSOMNIA [None]
  - ARTHRALGIA [None]
  - HEART RATE INCREASED [None]
  - ABDOMINAL DISTENSION [None]
